FAERS Safety Report 11547988 (Version 2)
Quarter: 2015Q4

REPORT INFORMATION
  Report Type: Spontaneous
  Country: US (occurrence: None)
  Receive Date: 20150924
  Receipt Date: 20151102
  Transmission Date: 20160304
  Serious: Yes (Other)
  Sender: FDA-Public Use
  Company Number: US-MDT-ADR-2015-01842

PATIENT
  Age: 65 Year
  Sex: Male

DRUGS (2)
  1. DILAUDID [Suspect]
     Active Substance: HYDROMORPHONE HYDROCHLORIDE
     Dosage: 2.33 MCG/DAY
  2. COMPOUNDED BACLOFEN INTRATHECAL 300 MCG/ML [Suspect]
     Active Substance: BACLOFEN
     Indication: PAIN
     Dosage: 99.93 MCG/DAY

REACTIONS (5)
  - Pain [None]
  - Seizure [None]
  - Gait disturbance [None]
  - Muscle spasms [None]
  - Therapeutic response decreased [None]
